FAERS Safety Report 8765199 (Version 1)
Quarter: 2012Q4

REPORT INFORMATION
  Report Type: 
  Country: US (occurrence: US)
  Receive Date: 20120902
  Receipt Date: 20120902
  Transmission Date: 20130627
  Serious: No
  Sender: FDA-Public Use
  Company Number: US-PFIZER INC-2012213404

PATIENT
  Age: 49 Year
  Sex: Female
  Weight: 55.78 kg

DRUGS (2)
  1. PRISTIQ [Suspect]
     Indication: DEPRESSION
     Dosage: 50 mg, 1x/day
     Route: 048
     Dates: start: 201204
  2. VALIUM [Concomitant]
     Indication: PELVIC DISCOMFORT
     Dosage: 10 mg, UNK
     Route: 067

REACTIONS (1)
  - Abnormal faeces [Unknown]
